FAERS Safety Report 5193955-1 (Version None)
Quarter: 2006Q4

REPORT INFORMATION
  Report Type: 
  Country: None (occurrence: None)
  Receive Date: 20061228
  Receipt Date: 20061222
  Transmission Date: 20070319
  Serious: Yes (Death)
  Sender: FDA-Public Use
  Company Number: JP-MERCK-0612USA03647

PATIENT
  Age: 80 Year
  Sex: Female

DRUGS (1)
  1. PEPCID [Suspect]
     Indication: UPPER GASTROINTESTINAL HAEMORRHAGE
     Route: 042
     Dates: start: 20061116, end: 20061209

REACTIONS (1)
  - PANCYTOPENIA [None]
